FAERS Safety Report 13457000 (Version 2)
Quarter: 2017Q3

REPORT INFORMATION
  Report Type: Spontaneous
  Country: US (occurrence: US)
  Receive Date: 20170419
  Receipt Date: 20170721
  Transmission Date: 20171127
  Serious: No
  Sender: FDA-Public Use
  Company Number: US-ST. RENATUS-2017STR00006

PATIENT
  Age: 54 Year
  Sex: Female

DRUGS (1)
  1. KOVANAZE [Suspect]
     Active Substance: OXYMETAZOLINE HYDROCHLORIDE\TETRACAINE HYDROCHLORIDE
     Dosage: 2 SPRAYS
     Route: 045
     Dates: start: 20170308, end: 20170308

REACTIONS (9)
  - Vision blurred [Not Recovered/Not Resolved]
  - Ocular hyperaemia [Unknown]
  - Application site pain [Unknown]
  - Intentional product misuse [Unknown]
  - Sinus headache [Unknown]
  - Sneezing [Unknown]
  - Rhinorrhoea [Unknown]
  - Epistaxis [Unknown]
  - Eye swelling [Unknown]

NARRATIVE: CASE EVENT DATE: 201703
